FAERS Safety Report 10204854 (Version 1)
Quarter: 2014Q2

REPORT INFORMATION
  Report Type: Spontaneous
  Country: US (occurrence: US)
  Receive Date: 20140529
  Receipt Date: 20140529
  Transmission Date: 20141212
  Serious: No
  Sender: FDA-Public Use
  Company Number: US-ASTRAZENECA-2014SE34779

PATIENT
  Age: 70 Year
  Sex: Female

DRUGS (2)
  1. SEROQUEL [Suspect]
     Indication: PRODUCT USED FOR UNKNOWN INDICATION
     Route: 048
  2. OTHER-UNSPECIFIED [Concomitant]
     Indication: HYPERTENSION
     Dosage: UNKNOWN UNK
     Route: 048

REACTIONS (1)
  - Peripheral swelling [Unknown]
